FAERS Safety Report 19961282 (Version 1)
Quarter: 2021Q4

REPORT INFORMATION
  Report Type: Spontaneous
  Country: US (occurrence: US)
  Receive Date: 20211017
  Receipt Date: 20211017
  Transmission Date: 20220303
  Serious: No
  Sender: FDA-Public Use
  Company Number: US-SA-SAC20211013000365

PATIENT
  Sex: Female

DRUGS (8)
  1. DUPIXENT [Suspect]
     Active Substance: DUPILUMAB
     Indication: Dermatitis atopic
     Dosage: UNK UNK, QOW
     Route: 058
  2. VITAMINS NOS [Concomitant]
     Active Substance: VITAMINS
  3. PREDNISONE [Concomitant]
     Active Substance: PREDNISONE
     Indication: Dermatitis atopic
  4. PREDNISONE [Concomitant]
     Active Substance: PREDNISONE
     Indication: Rhinitis allergic
  5. PREDNISONE [Concomitant]
     Active Substance: PREDNISONE
     Indication: Asthma
  6. EUCRISA [Concomitant]
     Active Substance: CRISABOROLE
     Indication: Dermatitis atopic
  7. CITALOPRAM HYDROBROMIDE [Concomitant]
     Active Substance: CITALOPRAM HYDROBROMIDE
  8. HYDROXYZINE HYDROCHLORIDE [Concomitant]
     Active Substance: HYDROXYZINE HYDROCHLORIDE

REACTIONS (3)
  - Eczema [Recovering/Resolving]
  - Pruritus [Recovering/Resolving]
  - Drug effect less than expected [Unknown]
